FAERS Safety Report 13290811 (Version 20)
Quarter: 2021Q1

REPORT INFORMATION
  Report Type: Spontaneous
  Country: FR (occurrence: FR)
  Receive Date: 20170302
  Receipt Date: 20210311
  Transmission Date: 20210419
  Serious: Yes (Death, Hospitalization, Other)
  Sender: FDA-Public Use
  Company Number: FR-009507513-1702FRA011730

PATIENT
  Age: 71 Year
  Sex: Male
  Weight: 113.4 kg

DRUGS (81)
  1. PANTOPRAZOLE [Suspect]
     Active Substance: PANTOPRAZOLE
     Indication: CHEST SCAN
     Dosage: UNK
     Route: 042
     Dates: start: 20161225, end: 20170119
  2. QUESTRAN [Suspect]
     Active Substance: CHOLESTYRAMINE
     Indication: SKIN INFECTION
     Dosage: 4 G, 1X/DAY
     Route: 048
     Dates: start: 20161216, end: 20170119
  3. ULTRAVIST [Suspect]
     Active Substance: IOPROMIDE
     Indication: SKIN INFECTION
  4. LINEZOLID. [Suspect]
     Active Substance: LINEZOLID
     Indication: CHEST SCAN
     Dosage: 600 MG, BID
     Route: 048
     Dates: start: 20161222, end: 20170110
  5. LANTUS [Concomitant]
     Active Substance: INSULIN GLARGINE
     Route: 065
  6. LOVENOX [Concomitant]
     Active Substance: ENOXAPARIN SODIUM
     Indication: PRODUCT USED FOR UNKNOWN INDICATION
     Dosage: UNK
     Route: 065
     Dates: start: 20170114
  7. LOPERAMIDE [Concomitant]
     Active Substance: LOPERAMIDE
     Route: 065
  8. QUESTRAN [Suspect]
     Active Substance: CHOLESTYRAMINE
     Indication: PRODUCT USED FOR UNKNOWN INDICATION
     Dosage: 4 G, QD
     Route: 048
     Dates: start: 20161216, end: 20170119
  9. PIPERACILLIN AND TAZOBACTAM [Suspect]
     Active Substance: PIPERACILLIN SODIUM\TAZOBACTAM SODIUM
     Indication: CHEST SCAN
  10. LANTUS [Concomitant]
     Active Substance: INSULIN GLARGINE
  11. DIFFU?K [Concomitant]
     Active Substance: POTASSIUM CHLORIDE
  12. UMULINE ZINC COMPOSE [Concomitant]
     Active Substance: INSULIN HUMAN
     Route: 065
  13. FUROSEMIDE. [Concomitant]
     Active Substance: FUROSEMIDE
     Route: 065
  14. FUROSEMIDE. [Concomitant]
     Active Substance: FUROSEMIDE
     Dosage: UNK
  15. DUPHALAC [Concomitant]
     Active Substance: LACTULOSE
     Dosage: UNK
     Route: 065
  16. QUESTRAN [Suspect]
     Active Substance: CHOLESTYRAMINE
     Indication: PRODUCT USED FOR UNKNOWN INDICATION
     Dosage: 1 DF, QD
     Route: 048
     Dates: start: 20161216, end: 20170119
  17. ULTRAVIST [Suspect]
     Active Substance: IOPROMIDE
     Dosage: 370 MG, UNK
     Route: 042
     Dates: start: 20170116, end: 20170116
  18. NEFOPAM [Suspect]
     Active Substance: NEFOPAM
     Indication: CHEST SCAN
     Dosage: UNK
     Route: 042
     Dates: start: 20161202, end: 20170119
  19. RACECADOTRIL [Suspect]
     Active Substance: RACECADOTRIL
     Indication: CHEST SCAN
     Dosage: 100 MG, TID (1 DF)
     Route: 048
     Dates: start: 20161209, end: 20170119
  20. VANCOMYCIN HYDROCHLORIDE. [Suspect]
     Active Substance: VANCOMYCIN HYDROCHLORIDE
     Indication: CHEST SCAN
     Route: 065
  21. FUROSEMIDE. [Concomitant]
     Active Substance: FUROSEMIDE
     Route: 065
  22. ULTRAVIST [Suspect]
     Active Substance: IOPROMIDE
     Dosage: 370 MG, UNK
     Route: 042
     Dates: end: 20170116
  23. SYMBICORT [Suspect]
     Active Substance: BUDESONIDE\FORMOTEROL FUMARATE DIHYDRATE
     Indication: PRODUCT USED FOR UNKNOWN INDICATION
     Dosage: 400/12 1 INHALATION PER DAY
     Route: 055
     Dates: start: 20161220, end: 20170119
  24. KARDEGIC [Concomitant]
     Active Substance: ASPIRIN DL-LYSINE
     Indication: PRODUCT USED FOR UNKNOWN INDICATION
     Dosage: UNK
     Route: 065
  25. POLARAMINE [Concomitant]
     Active Substance: DEXCHLORPHENIRAMINE MALEATE
     Indication: PRODUCT USED FOR UNKNOWN INDICATION
     Dosage: UNK
     Route: 065
  26. LOPERAMIDE [Concomitant]
     Active Substance: LOPERAMIDE
     Route: 065
  27. POLARAMINE [Concomitant]
     Active Substance: DEXCHLORPHENIRAMINE MALEATE
     Dosage: UNK
     Route: 065
  28. CUBICIN [Suspect]
     Active Substance: DAPTOMYCIN
     Indication: PRODUCT USED FOR UNKNOWN INDICATION
     Dosage: 800 MG, QD
     Route: 042
     Dates: start: 20170110, end: 20170201
  29. CUBICIN [Suspect]
     Active Substance: DAPTOMYCIN
     Indication: CHEST SCAN
     Dosage: 800 MG, QD
     Route: 042
     Dates: start: 20170110
  30. CUBICIN [Suspect]
     Active Substance: DAPTOMYCIN
     Dosage: 800 MG, QD
     Route: 042
  31. DAPTOMYCIN. [Suspect]
     Active Substance: DAPTOMYCIN
     Indication: CHEST SCAN
     Dosage: 800 MG, 1X/DAY
     Route: 042
     Dates: start: 20170110
  32. DAPTOMYCIN. [Suspect]
     Active Substance: DAPTOMYCIN
     Indication: SKIN INFECTION
     Dosage: 800 MG, 1X/DAY
     Route: 042
     Dates: start: 20170110, end: 20170201
  33. RIFADIN [Suspect]
     Active Substance: RIFAMPIN
     Indication: PRODUCT USED FOR UNKNOWN INDICATION
     Dosage: UNK
     Route: 065
  34. NEFOPAM [Suspect]
     Active Substance: NEFOPAM
     Indication: SKIN INFECTION
  35. ACETAMINOPHEN (+) TRAMADOL HYDROCHLORIDE [Suspect]
     Active Substance: ACETAMINOPHEN\TRAMADOL HYDROCHLORIDE
     Indication: PRODUCT USED FOR UNKNOWN INDICATION
     Dosage: 8 DF, QD (2 TABLETS, FOUR TIMES A DAY)
     Route: 048
     Dates: start: 20161201, end: 20170119
  36. PRIMPERAN [Suspect]
     Active Substance: METOCLOPRAMIDE HYDROCHLORIDE
     Indication: PRODUCT USED FOR UNKNOWN INDICATION
     Dosage: 3 DF, TID ( 1 DF TID)
     Route: 048
     Dates: start: 20161224, end: 20170119
  37. PRIMPERAN [Suspect]
     Active Substance: METOCLOPRAMIDE HYDROCHLORIDE
     Indication: SKIN INFECTION
     Dosage: 10 MG, TID (3 DF, TID (1 DF TID))
     Route: 048
     Dates: start: 20161224, end: 20170119
  38. VANCOMYCIN HYDROCHLORIDE. [Suspect]
     Active Substance: VANCOMYCIN HYDROCHLORIDE
     Indication: PRODUCT USED FOR UNKNOWN INDICATION
     Dosage: UNK
     Route: 065
  39. VANCOMYCIN HYDROCHLORIDE. [Suspect]
     Active Substance: VANCOMYCIN HYDROCHLORIDE
     Indication: SKIN INFECTION
     Dosage: UNK
     Route: 065
  40. LANTUS [Concomitant]
     Active Substance: INSULIN GLARGINE
     Indication: PRODUCT USED FOR UNKNOWN INDICATION
     Dosage: UNK
     Route: 065
  41. DIFFU?K [Concomitant]
     Active Substance: POTASSIUM CHLORIDE
     Route: 065
  42. FUROSEMIDE. [Concomitant]
     Active Substance: FUROSEMIDE
     Indication: PRODUCT USED FOR UNKNOWN INDICATION
     Dosage: UNK
     Route: 065
  43. KARDEGIC [Concomitant]
     Active Substance: ASPIRIN DL-LYSINE
     Indication: PRODUCT USED FOR UNKNOWN INDICATION
     Dosage: UNK
     Route: 065
  44. POTASSIUM CHLORIDE. [Concomitant]
     Active Substance: POTASSIUM CHLORIDE
     Dosage: UNK
  45. CUBICIN [Suspect]
     Active Substance: DAPTOMYCIN
     Indication: SKIN INFECTION
     Dosage: 800 MG, QD
     Route: 042
  46. PANTOPRAZOLE [Suspect]
     Active Substance: PANTOPRAZOLE
     Indication: PRODUCT USED FOR UNKNOWN INDICATION
     Dosage: UNK
     Route: 042
     Dates: start: 20161225, end: 20170119
  47. METOCLOPRAMIDE HYDROCHLORIDE. [Suspect]
     Active Substance: METOCLOPRAMIDE HYDROCHLORIDE
     Indication: CHEST SCAN
  48. RACECADOTRIL [Suspect]
     Active Substance: RACECADOTRIL
     Indication: SKIN INFECTION
  49. BUDESONIDE. [Suspect]
     Active Substance: BUDESONIDE
     Indication: PRODUCT USED FOR UNKNOWN INDICATION
     Dosage: 1 DF, QD
     Route: 055
     Dates: start: 20161220, end: 20170119
  50. CHOLESTYRAMINE RESIN [Suspect]
     Active Substance: CHOLESTYRAMINE
     Indication: CHEST SCAN
     Dosage: UNK
  51. DIFFU?K [Concomitant]
     Active Substance: POTASSIUM CHLORIDE
     Indication: PRODUCT USED FOR UNKNOWN INDICATION
     Dosage: UNK
     Route: 065
  52. DUPHALAC [Concomitant]
     Active Substance: LACTULOSE
     Indication: PRODUCT USED FOR UNKNOWN INDICATION
     Dosage: UNK
     Route: 065
  53. DUPHALAC [Concomitant]
     Active Substance: LACTULOSE
     Dosage: UNK
  54. DUPHALAC [Concomitant]
     Active Substance: LACTULOSE
     Dosage: UNK
  55. LOVENOX (LEVOFLOXACIN) [Concomitant]
     Dosage: UNK
  56. METOCLOPRAMIDE HYDROCHLORIDE. [Suspect]
     Active Substance: METOCLOPRAMIDE HYDROCHLORIDE
     Indication: PRODUCT USED FOR UNKNOWN INDICATION
     Dosage: 30 MG, QD
     Route: 048
  57. METOCLOPRAMIDE HYDROCHLORIDE. [Suspect]
     Active Substance: METOCLOPRAMIDE HYDROCHLORIDE
     Indication: SKIN INFECTION
     Dosage: 30 MG, QD
     Route: 048
  58. RIFADIN [Suspect]
     Active Substance: RIFAMPIN
     Indication: SKIN INFECTION
  59. RIFADIN [Suspect]
     Active Substance: RIFAMPIN
     Dosage: UNK
     Route: 065
  60. RIFAMPIN. [Suspect]
     Active Substance: RIFAMPIN
     Indication: PRODUCT USED FOR UNKNOWN INDICATION
     Route: 065
  61. RIFAMPIN. [Suspect]
     Active Substance: RIFAMPIN
     Indication: SKIN INFECTION
  62. NEFOPAM [Suspect]
     Active Substance: NEFOPAM
     Indication: PRODUCT USED FOR UNKNOWN INDICATION
     Dosage: UNK
     Route: 042
     Dates: start: 20161202, end: 20170119
  63. LINEZOLID. [Suspect]
     Active Substance: LINEZOLID
     Indication: SKIN INFECTION
     Dosage: 600 MG, BID
     Route: 048
     Dates: start: 20161222, end: 20170110
  64. PRIMPERAN [Suspect]
     Active Substance: METOCLOPRAMIDE HYDROCHLORIDE
     Indication: CHEST SCAN
  65. CHOLESTYRAMINE RESIN [Suspect]
     Active Substance: CHOLESTYRAMINE
     Indication: SKIN INFECTION
  66. LANTUS [Concomitant]
     Active Substance: INSULIN GLARGINE
     Dosage: UNK
  67. UMULINE ZINC COMPOSE [Concomitant]
     Active Substance: INSULIN HUMAN
     Indication: PRODUCT USED FOR UNKNOWN INDICATION
     Dosage: UNK
     Route: 065
  68. UMULINE ZINC COMPOSE [Concomitant]
     Active Substance: INSULIN HUMAN
     Dosage: UNK
  69. LOPERAMIDE [Concomitant]
     Active Substance: LOPERAMIDE
     Indication: PRODUCT USED FOR UNKNOWN INDICATION
     Dosage: UNK
     Route: 065
  70. PANTOPRAZOLE [Suspect]
     Active Substance: PANTOPRAZOLE
     Indication: SKIN INFECTION
  71. QUESTRAN [Suspect]
     Active Substance: CHOLESTYRAMINE
     Indication: CHEST SCAN
     Dosage: 4 G, QD
     Route: 048
     Dates: start: 20161216, end: 20170119
  72. ULTRAVIST [Suspect]
     Active Substance: IOPROMIDE
     Indication: CHEST SCAN
     Dosage: 370 MG, UNK
     Route: 042
     Dates: start: 20170116, end: 20170116
  73. RIFADIN [Suspect]
     Active Substance: RIFAMPIN
     Indication: CHEST SCAN
     Route: 065
  74. RIFAMPIN. [Suspect]
     Active Substance: RIFAMPIN
     Indication: CHEST SCAN
  75. RACECADOTRIL [Suspect]
     Active Substance: RACECADOTRIL
     Indication: PRODUCT USED FOR UNKNOWN INDICATION
     Dosage: 1 DF, TID
     Route: 048
     Dates: start: 20161209, end: 20170119
  76. PIPERACILLIN AND TAZOBACTAM [Suspect]
     Active Substance: PIPERACILLIN SODIUM\TAZOBACTAM SODIUM
     Indication: SKIN INFECTION
     Dosage: 3 DF, QD (1 DF, TID)
     Route: 042
     Dates: start: 20161204, end: 20170130
  77. DIFFU?K [Concomitant]
     Active Substance: POTASSIUM CHLORIDE
     Dosage: UNK
     Route: 065
  78. UMULINE ZINC COMPOSE [Concomitant]
     Active Substance: INSULIN HUMAN
  79. KARDEGIC [Concomitant]
     Active Substance: ASPIRIN DL-LYSINE
     Dosage: UNK
     Route: 065
  80. LOPERAMIDE [Concomitant]
     Active Substance: LOPERAMIDE
     Dosage: UNK
     Route: 065
  81. INSULIN HUMAN [Concomitant]
     Active Substance: INSULIN HUMAN
     Dosage: UNK

REACTIONS (18)
  - Death [Fatal]
  - Hyperammonaemia [Fatal]
  - Acute kidney injury [Fatal]
  - Glomerular filtration rate decreased [Fatal]
  - Restlessness [Fatal]
  - Diffuse alveolar damage [Fatal]
  - Eosinophilia [Fatal]
  - Eosinophilic pneumonia [Fatal]
  - Dyspnoea [Fatal]
  - Sepsis [Fatal]
  - Generalised oedema [Fatal]
  - Hepatic encephalopathy [Fatal]
  - Rectal haemorrhage [Fatal]
  - Pulmonary interstitial emphysema syndrome [Fatal]
  - Thrombocytopenia [Fatal]
  - Rash maculo-papular [Fatal]
  - Eczema [Fatal]
  - Alveolar lung disease [Fatal]

NARRATIVE: CASE EVENT DATE: 20161227
